FAERS Safety Report 4796414-0 (Version None)
Quarter: 2005Q4

REPORT INFORMATION
  Report Type: 
  Country: None (occurrence: None)
  Receive Date: 20051011
  Receipt Date: 20041228
  Transmission Date: 20060501
  Serious: Yes (Hospitalization)
  Sender: FDA-Public Use
  Company Number: 04P-163-0284723-00

PATIENT
  Age: 66 Year
  Sex: Male
  Weight: 92.9874 kg

DRUGS (7)
  1. TRICOR [Suspect]
     Indication: BLOOD TRIGLYCERIDES INCREASED
     Dosage: 160 MG, 1 IN 1 D, PER ORAL
     Route: 048
     Dates: start: 20040301
  2. ASPIRIN [Concomitant]
  3. CLOPIDOGREL BISULFATE [Concomitant]
  4. PROPRANOLOL HYDROCHLORIDE [Concomitant]
  5. GLIBENCLAMIDE [Concomitant]
  6. CAPTOPRIL [Concomitant]
  7. PRAVASTATIN SODIUM [Concomitant]

REACTIONS (2)
  - ABDOMINAL PAIN [None]
  - DIARRHOEA [None]
